FAERS Safety Report 6815400-X (Version None)
Quarter: 2010Q3

REPORT INFORMATION
  Report Type: 
  Country: None (occurrence: None)
  Receive Date: 20100702
  Receipt Date: 20100623
  Transmission Date: 20110219
  Serious: Yes (Hospitalization)
  Sender: FDA-Public Use
  Company Number: GB-JNJFOC-20100606735

PATIENT
  Age: 76 Year
  Sex: Female

DRUGS (11)
  1. IBUPROFEN [Suspect]
     Indication: PAIN
     Route: 048
  2. POTASSIUM CHLORIDE [Suspect]
     Indication: HYPOKALAEMIA
     Route: 048
  3. CIMETIDINE [Concomitant]
  4. AMILORIDE HYDROCHLORIDE AND HYDROCHLOROTHIAZIDE [Concomitant]
  5. FOLIC ACID [Concomitant]
  6. LOPERAMIDE [Concomitant]
  7. NICOTINAMIDE [Concomitant]
  8. OXYBUTYNIN CHLORIDE [Concomitant]
  9. PERINDOPRIL [Concomitant]
  10. THEOPHYLLINE [Concomitant]
  11. VITAMIN B [Concomitant]

REACTIONS (3)
  - ATRIAL FIBRILLATION [None]
  - HYPOTENSION [None]
  - UPPER GASTROINTESTINAL HAEMORRHAGE [None]
